FAERS Safety Report 9189174 (Version 2)
Quarter: 2013Q2

REPORT INFORMATION
  Report Type: Spontaneous
  Country: US (occurrence: US)
  Receive Date: 20130326
  Receipt Date: 20130502
  Transmission Date: 20140414
  Serious: Yes (Hospitalization)
  Sender: FDA-Public Use
  Company Number: US-009507513-1303USA011960

PATIENT
  Age: 62 Year
  Sex: Male

DRUGS (3)
  1. VICTRELIS [Suspect]
     Indication: HEPATITIS C
     Dosage: 800 MG, TID
     Route: 048
     Dates: start: 20121207, end: 20130317
  2. PEGASYS [Suspect]
     Dosage: UNK
     Dates: start: 20121112
  3. REBETOL [Suspect]
     Dosage: UNK
     Route: 048
     Dates: start: 20121112

REACTIONS (2)
  - Pancreatitis [Unknown]
  - Inappropriate schedule of drug administration [Unknown]
